FAERS Safety Report 5571143-4 (Version None)
Quarter: 2007Q4

REPORT INFORMATION
  Report Type: 
  Country: None (occurrence: None)
  Receive Date: 20071221
  Receipt Date: 20070227
  Transmission Date: 20080405
  Serious: No
  Sender: FDA-Public Use
  Company Number: A0627562A

PATIENT
  Age: 76 Year
  Sex: Female
  Weight: 87.3 kg

DRUGS (5)
  1. FLUTICASONE PROPIONATE [Suspect]
     Indication: MULTIPLE ALLERGIES
     Route: 045
     Dates: start: 20061102
  2. GLIPIZIDE [Concomitant]
     Dosage: 5MG PER DAY
     Route: 048
  3. LOVASTATIN [Concomitant]
     Dosage: 40MG ALTERNATE DAYS
     Route: 048
  4. FUROSEMIDE [Concomitant]
     Dosage: 40MG WEEKLY
     Route: 048
  5. POTASSIUM CHLORIDE [Concomitant]
     Dosage: 20MEQ PER DAY
     Route: 048

REACTIONS (2)
  - HEADACHE [None]
  - PHARMACEUTICAL PRODUCT COMPLAINT [None]
